FAERS Safety Report 5407144-6 (Version None)
Quarter: 2007Q3

REPORT INFORMATION
  Report Type: 
  Country: None (occurrence: None)
  Receive Date: 20070803
  Receipt Date: 20070803
  Transmission Date: 20080115
  Serious: Yes (Hospitalization)
  Sender: FDA-Public Use
  Company Number: None

PATIENT
  Sex: Male
  Weight: 78.95 kg

DRUGS (1)
  1. CISPLATIN [Suspect]
     Dosage: 192 MG
     Dates: end: 20070618

REACTIONS (4)
  - CHRONIC OBSTRUCTIVE PULMONARY DISEASE [None]
  - CONDITION AGGRAVATED [None]
  - HYPERTENSION [None]
  - MUSCULOSKELETAL CHEST PAIN [None]
